FAERS Safety Report 19441210 (Version 1)
Quarter: 2021Q2

REPORT INFORMATION
  Report Type: Other
  Country: MY (occurrence: MY)
  Receive Date: 20210621
  Receipt Date: 20210621
  Transmission Date: 20210717
  Serious: Yes (Hospitalization, Other)
  Sender: FDA-Public Use
  Company Number: MY-HEALTHCARE PHARMACEUTICALS LTD.-2112902

PATIENT
  Age: 62 Year
  Sex: Female

DRUGS (7)
  1. ATORVASTATIN [Suspect]
     Active Substance: ATORVASTATIN
     Route: 048
  2. DILTIAZEM. [Suspect]
     Active Substance: DILTIAZEM
     Route: 048
  3. FRUSEMIDE [Suspect]
     Active Substance: FUROSEMIDE
     Route: 048
  4. METFORMIN [Suspect]
     Active Substance: METFORMIN HYDROCHLORIDE
     Route: 048
  5. ASPIRIN. [Suspect]
     Active Substance: ASPIRIN
     Route: 048
  6. ATENOLOL TABLETS USP [Suspect]
     Active Substance: ATENOLOL
     Indication: PRODUCT USED FOR UNKNOWN INDICATION
     Route: 048
  7. TELMISARTAN. [Suspect]
     Active Substance: TELMISARTAN
     Route: 048

REACTIONS (1)
  - BRASH syndrome [Recovering/Resolving]
